FAERS Safety Report 7656396-0 (Version None)
Quarter: 2011Q3

REPORT INFORMATION
  Report Type: 
  Country: None (occurrence: None)
  Receive Date: 20110804
  Receipt Date: 20110726
  Transmission Date: 20111222
  Serious: Yes (Hospitalization)
  Sender: FDA-Public Use
  Company Number: US-GLAXOSMITHKLINE-A0939428A

PATIENT
  Age: 16 Year
  Sex: Male
  Weight: 116 kg

DRUGS (5)
  1. SOLOTRON [Concomitant]
  2. CELEXA [Concomitant]
     Dates: start: 20060926, end: 20070601
  3. WEIGHT LOSS MEDICATION [Concomitant]
  4. LAMICTAL [Suspect]
     Indication: BIPOLAR II DISORDER
     Dosage: 200MG PER DAY
     Route: 048
     Dates: start: 20070102, end: 20070601
  5. ATIVAN [Concomitant]
     Dates: end: 20070601

REACTIONS (5)
  - ESCHERICHIA INFECTION [None]
  - STEVENS-JOHNSON SYNDROME [None]
  - METABOLIC ACIDOSIS [None]
  - CANDIDIASIS [None]
  - STAPHYLOCOCCAL INFECTION [None]
